FAERS Safety Report 6370720-0 (Version None)
Quarter: 2009Q3

REPORT INFORMATION
  Report Type: 
  Country: None (occurrence: None)
  Receive Date: 20090923
  Receipt Date: 20070706
  Transmission Date: 20100115
  Serious: Yes (Other)
  Sender: FDA-Public Use
  Company Number: US-ASTRAZENECA-2006UW26212

PATIENT
  Age: 45 Year
  Sex: Female
  Weight: 69.4 kg

DRUGS (14)
  1. SEROQUEL [Suspect]
     Indication: BIPOLAR DISORDER
     Route: 048
     Dates: start: 20040101
  2. SEROQUEL [Suspect]
     Dosage: 25 MG TO 100 MG, AT NIGHT
     Route: 048
  3. RISPERDAL [Concomitant]
  4. OLANZAPINE [Concomitant]
  5. BUPROPION HCL [Concomitant]
     Route: 048
     Dates: start: 20070329
  6. SIMVASTATIN [Concomitant]
     Dosage: 20 MG, HALF TAB AT NIGHT
     Route: 048
     Dates: start: 20070112
  7. LISINOPRIL [Concomitant]
     Route: 048
     Dates: start: 20070112
  8. GLYBURIDE [Concomitant]
     Route: 048
     Dates: start: 20070112
  9. CYCLOBENZAPRINE [Concomitant]
     Route: 048
     Dates: start: 20070112
  10. FELODIPINE [Concomitant]
     Route: 048
     Dates: start: 20060619
  11. ALENDRONATE SODIUM [Concomitant]
     Route: 048
     Dates: start: 20050829
  12. METFORMIN HCL [Concomitant]
     Route: 048
     Dates: start: 20040223
  13. MIRTAZAPINE [Concomitant]
     Dosage: 15 MG TAB, HALF TAB AT NIGHT
     Route: 048
     Dates: start: 20040223
  14. RAMIPRIL [Concomitant]
     Indication: DIABETES MELLITUS
     Route: 048
     Dates: start: 20040109

REACTIONS (1)
  - TARDIVE DYSKINESIA [None]
